FAERS Safety Report 9955888 (Version 1)
Quarter: 2014Q1

REPORT INFORMATION
  Report Type: Report from Study
  Country: US (occurrence: US)
  Receive Date: 20140304
  Receipt Date: 20140304
  Transmission Date: 20141002
  Serious: No
  Sender: FDA-Public Use
  Company Number: US-ABBVIE-13P-163-1083337-00

PATIENT
  Age: 56 Year
  Sex: Female

DRUGS (15)
  1. HUMIRA [Suspect]
     Indication: RHEUMATOID ARTHRITIS
     Dates: start: 200611
  2. PLAQUENIL [Concomitant]
     Indication: RHEUMATOID ARTHRITIS
  3. VERAPAMIL [Concomitant]
     Indication: HYPERTENSION
  4. CARVEDILOL [Concomitant]
     Indication: HYPERTENSION
  5. FOLIC ACID [Concomitant]
     Indication: VITAMIN SUPPLEMENTATION
  6. METHOTREXATE [Concomitant]
     Indication: RHEUMATOID ARTHRITIS
  7. LASIX [Concomitant]
     Indication: HYPERTENSION
  8. SULFASALAZINE [Concomitant]
     Indication: RHEUMATOID ARTHRITIS
  9. LOSARTAN [Concomitant]
     Indication: HYPERTENSION
  10. PANTOPRAZOLE [Concomitant]
     Indication: HYPERTENSION
  11. PROZAC [Concomitant]
     Indication: DEPRESSION
  12. ASPIRIN [Concomitant]
     Indication: CARDIOVASCULAR EVENT PROPHYLAXIS
  13. NITROGLYCERIN [Concomitant]
     Indication: CHEST PAIN
  14. UNKNOWN MEDICATION [Concomitant]
     Indication: PAIN
  15. VITAMINS [Concomitant]
     Indication: VITAMIN SUPPLEMENTATION

REACTIONS (2)
  - Nasopharyngitis [Recovered/Resolved]
  - Impaired healing [Recovered/Resolved]
